FAERS Safety Report 6510137-9 (Version None)
Quarter: 2009Q4

REPORT INFORMATION
  Report Type: 
  Country: None (occurrence: None)
  Receive Date: 20091222
  Receipt Date: 20091214
  Transmission Date: 20100525
  Serious: Yes (Other)
  Sender: FDA-Public Use
  Company Number: B0616597A

PATIENT
  Sex: Female

DRUGS (5)
  1. COMBIVIR [Suspect]
     Indication: HIV INFECTION
     Route: 048
  2. LOPINAVIR AND RITONAVIR [Concomitant]
     Indication: HIV INFECTION
     Route: 048
  3. NELFINAVIR MESYLATE [Concomitant]
     Indication: HIV INFECTION
     Route: 048
  4. ANTI-EMETIC [Concomitant]
  5. EFAVIRENZ [Concomitant]
     Indication: HIV INFECTION

REACTIONS (6)
  - ANAEMIA [None]
  - BONE MARROW FAILURE [None]
  - DRUG INEFFECTIVE [None]
  - GASTROINTESTINAL DISORDER [None]
  - HAEMOGLOBIN DECREASED [None]
  - NERVOUS SYSTEM DISORDER [None]
